FAERS Safety Report 18198718 (Version 1)
Quarter: 2020Q3

REPORT INFORMATION
  Report Type: Spontaneous
  Country: ES (occurrence: ES)
  Receive Date: 20200826
  Receipt Date: 20200826
  Transmission Date: 20201103
  Serious: Yes (Disabling, Other)
  Sender: FDA-Public Use
  Company Number: ES-FRESENIUS KABI-FK202008597

PATIENT
  Age: 38 Year
  Sex: Female

DRUGS (1)
  1. BUPIVACAINE (MANUFACTURER UNKNOWN) [Suspect]
     Active Substance: BUPIVACAINE
     Indication: LABOUR INDUCTION
     Dosage: UNKNOWN
     Route: 008

REACTIONS (4)
  - Meningitis aseptic [Not Recovered/Not Resolved]
  - Anterograde amnesia [Not Recovered/Not Resolved]
  - Exposure during pregnancy [Not Recovered/Not Resolved]
  - Neurotoxicity [Not Recovered/Not Resolved]
